FAERS Safety Report 4483545-8 (Version None)
Quarter: 2004Q4

REPORT INFORMATION
  Report Type: 
  Country: None (occurrence: None)
  Receive Date: 20041019
  Receipt Date: 20041019
  Transmission Date: 20050328
  Serious: Yes (Life-Threatening, Hospitalization)
  Sender: FDA-Public Use
  Company Number: None

PATIENT
  Sex: Male

DRUGS (11)
  1. ASPIRIN [Suspect]
     Indication: PROPHYLAXIS
     Dosage: 325MG DAILY ORAL
     Route: 048
  2. RANITIDINE [Suspect]
     Indication: GASTROOESOPHAGEAL REFLUX DISEASE
     Dosage: 150 MG HS ORAL
     Route: 048
  3. SIMVASTATIN [Concomitant]
  4. SERTRALINE HCL [Concomitant]
  5. OXYBUTININ [Concomitant]
  6. METOPROLOL SUCCINATE [Concomitant]
  7. MAGNESIUM HYDROXIDE SUSPENSION [Concomitant]
  8. IPRATROPIUM BROMIDE [Concomitant]
  9. ALBUTEROL [Concomitant]
  10. ACETAMINOPHEN [Concomitant]
  11. FUROSEMIDE [Concomitant]

REACTIONS (1)
  - PLATELET COUNT DECREASED [None]
